FAERS Safety Report 11219434 (Version 1)
Quarter: 2015Q2

REPORT INFORMATION
  Report Type: Spontaneous
  Country: AT (occurrence: AT)
  Receive Date: 20150625
  Receipt Date: 20150625
  Transmission Date: 20150821
  Serious: Yes (Life-Threatening, Hospitalization)
  Sender: FDA-Public Use
  Company Number: AT-ASTRAZENECA-2015SE62482

PATIENT
  Age: 50 Year
  Sex: Female

DRUGS (5)
  1. DAPAGLIFLOZIN [Suspect]
     Active Substance: DAPAGLIFLOZIN
     Route: 048
  2. DOSTINEX [Concomitant]
     Active Substance: CABERGOLINE
  3. COSOPT EYE [Concomitant]
  4. ASPIRIN. [Concomitant]
     Active Substance: ASPIRIN
  5. METFORMIN [Concomitant]
     Active Substance: METFORMIN HYDROCHLORIDE

REACTIONS (5)
  - Diabetic ketoacidotic hyperglycaemic coma [Recovered/Resolved]
  - Pancreatitis [Recovered/Resolved]
  - Shock [Recovered/Resolved]
  - Prerenal failure [Recovered/Resolved]
  - Dyspnoea [Recovered/Resolved]
